FAERS Safety Report 9863131 (Version 1)
Quarter: 2014Q1

REPORT INFORMATION
  Report Type: Spontaneous
  Country: MX (occurrence: MX)
  Receive Date: 20140203
  Receipt Date: 20140203
  Transmission Date: 20141002
  Serious: Yes (Other)
  Sender: FDA-Public Use
  Company Number: PHHY2014MX011403

PATIENT
  Age: 61 Year
  Sex: Female

DRUGS (3)
  1. ZOMETA [Suspect]
     Indication: OSTEOPENIA
     Dosage: 2 DF, ANNUAL
     Route: 042
     Dates: start: 2008, end: 2012
  2. ZOMETA [Suspect]
     Indication: OFF LABEL USE
     Dosage: UNK UKN, UNK
     Dates: start: 201307
  3. ZOMETA [Suspect]
     Dosage: 2 DF, ANNUAL
     Dates: start: 201401

REACTIONS (3)
  - Osteoporosis [Not Recovered/Not Resolved]
  - Blood triglycerides increased [Not Recovered/Not Resolved]
  - Spinal pain [Recovering/Resolving]
